FAERS Safety Report 6751204-4 (Version None)
Quarter: 2010Q2

REPORT INFORMATION
  Report Type: 
  Country: None (occurrence: None)
  Receive Date: 20100602
  Receipt Date: 20100525
  Transmission Date: 20101027
  Serious: Yes (Other)
  Sender: FDA-Public Use
  Company Number: JP-JNJFOC-20100508635

PATIENT
  Age: 85 Year
  Sex: Female

DRUGS (2)
  1. DUROTEP MT [Suspect]
     Indication: POST HERPETIC NEURALGIA
     Route: 062
  2. ACETAMINOPHEN [Concomitant]
     Route: 065

REACTIONS (3)
  - AZOTAEMIA [None]
  - NAUSEA [None]
  - VOMITING [None]
